FAERS Safety Report 21157491 (Version 1)
Quarter: 2022Q3

REPORT INFORMATION
  Report Type: Spontaneous
  Country: US (occurrence: None)
  Receive Date: 20220730
  Receipt Date: 20220730
  Transmission Date: 20221027
  Serious: Yes (Life-Threatening, Hospitalization)
  Sender: FDA-Public Use
  Company Number: None

PATIENT
  Age: 76 Year
  Sex: Female
  Weight: 51.75 kg

DRUGS (7)
  1. AMIODARONE HYDROCHLORIDE [Suspect]
     Active Substance: AMIODARONE HYDROCHLORIDE
     Indication: Arrhythmia
     Dosage: FREQUENCY : DAILY;?
     Route: 048
     Dates: start: 20220310, end: 20220701
  2. ESCITALOPRAM [Concomitant]
     Active Substance: ESCITALOPRAM OXALATE
  3. XARELTO [Concomitant]
     Active Substance: RIVAROXABAN
  4. VITAMINS [Concomitant]
     Active Substance: VITAMINS
  5. COENZYME Q10 [Concomitant]
     Active Substance: DIETARY SUPPLEMENT\UBIDECARENONE
  6. Flintstones with Iron [Concomitant]
  7. GLUCOSAMINE [Concomitant]
     Active Substance: GLUCOSAMINE

REACTIONS (13)
  - Toxicity to various agents [None]
  - Anaemia [None]
  - Headache [None]
  - Gait disturbance [None]
  - Cardiac failure [None]
  - Insomnia [None]
  - Urine output decreased [None]
  - Pruritus [None]
  - Ageusia [None]
  - Decreased appetite [None]
  - Abdominal pain [None]
  - Diarrhoea [None]
  - Lip exfoliation [None]

NARRATIVE: CASE EVENT DATE: 20220701
